FAERS Safety Report 22674576 (Version 12)
Quarter: 2024Q3

REPORT INFORMATION
  Report Type: Spontaneous
  Country: US (occurrence: US)
  Receive Date: 20230705
  Receipt Date: 20240912
  Transmission Date: 20241017
  Serious: No
  Sender: PFIZER
  Company Number: US-PFIZER INC-PV202200126377

PATIENT
  Age: 74 Year
  Sex: Female

DRUGS (5)
  1. IBRANCE [Suspect]
     Active Substance: PALBOCICLIB
     Indication: Breast cancer metastatic
     Dosage: 150 MG, CYCLIC (ONCE DAILY)
     Route: 048
     Dates: start: 202206
  2. IBRANCE [Suspect]
     Active Substance: PALBOCICLIB
     Dosage: 75 MG, CYCLIC (ONCE A DAY, DAYS 1-21 EVERY 35 DAYS/ROTATION OF 3 WEEKS ON AND 2 WEEKS OFF)
     Route: 048
     Dates: start: 202209
  3. IBRANCE [Suspect]
     Active Substance: PALBOCICLIB
     Dosage: 75 MG, CYCLIC (ONCE A DAY DAYS 1-21 EVERY 35 DAYS)
     Route: 048
     Dates: start: 202405
  4. ANASTROZOLE [Concomitant]
     Active Substance: ANASTROZOLE
     Dosage: 1 MG
     Dates: start: 202205
  5. LISINOPRIL [Concomitant]
     Active Substance: LISINOPRIL
     Dosage: 5 MG
     Dates: start: 2022

REACTIONS (5)
  - Hypoacusis [Not Recovered/Not Resolved]
  - White blood cell count decreased [Unknown]
  - Fatigue [Unknown]
  - Off label use [Unknown]
  - Off label use [Unknown]

NARRATIVE: CASE EVENT DATE: 20220601
